FAERS Safety Report 10642011 (Version 2)
Quarter: 2015Q1

REPORT INFORMATION
  Report Type: Spontaneous
  Country: HU (occurrence: HU)
  Receive Date: 20141209
  Receipt Date: 20150206
  Transmission Date: 20150720
  Serious: Yes (Hospitalization)
  Sender: FDA-Public Use
  Company Number: HU-ABBVIE-14K-076-1316779-00

PATIENT
  Age: 52 Year
  Sex: Male
  Weight: 88 kg

DRUGS (1)
  1. HUMIRA [Suspect]
     Active Substance: ADALIMUMAB
     Indication: PSORIASIS
     Route: 058
     Dates: start: 20110509, end: 20140901

REACTIONS (8)
  - Hypoaesthesia [Unknown]
  - Malignant neoplasm of unknown primary site [Unknown]
  - Disseminated tuberculosis [Unknown]
  - Quadriplegia [Not Recovered/Not Resolved]
  - Bone tuberculosis [Not Recovered/Not Resolved]
  - Abasia [Unknown]
  - Decreased appetite [Unknown]
  - Asthenia [Unknown]

NARRATIVE: CASE EVENT DATE: 201408
